FAERS Safety Report 7570229-2 (Version None)
Quarter: 2011Q2

REPORT INFORMATION
  Report Type: 
  Country: None (occurrence: None)
  Receive Date: 20110620
  Receipt Date: 20110614
  Transmission Date: 20111010
  Serious: Yes (Other)
  Sender: FDA-Public Use
  Company Number: USA/USA/11/0018724

PATIENT
  Age: 54 Year
  Sex: Female
  Weight: 54.4316 kg

DRUGS (14)
  1. AUGMENTIN '250' [Suspect]
     Indication: CHRONIC SINUSITIS
     Dosage: 250 MG / 5 ML ORAL SUSPENSION 1 TEASPONNFUL ORALLY THRICE DAILY
     Route: 048
  2. LISINOPRIL [Concomitant]
  3. DEMEROL [Concomitant]
  4. CLARITIN (GLICLAZIDE) [Concomitant]
  5. PREDNISONE [Concomitant]
  6. PREDNISONE [Concomitant]
  7. ADVIL (MEFANAMIC ACID) [Concomitant]
  8. COREG [Concomitant]
  9. SINGULAIR [Concomitant]
  10. PEPCID [Concomitant]
  11. THYROID TAB [Concomitant]
  12. ALBUTEROL [Concomitant]
  13. CARAFATE [Concomitant]
  14. ACETAMINOPHEN [Concomitant]

REACTIONS (3)
  - PRODUCT COLOUR ISSUE [None]
  - PRODUCT QUALITY ISSUE [None]
  - ABDOMINAL DISTENSION [None]
